FAERS Safety Report 4694507-X (Version None)
Quarter: 2005Q2

REPORT INFORMATION
  Report Type: 
  Country: None (occurrence: None)
  Receive Date: 20050614
  Receipt Date: 20050330
  Transmission Date: 20051028
  Serious: No
  Sender: FDA-Public Use
  Company Number: USA050393945

PATIENT
  Age: 70 Year
  Sex: Male

DRUGS (1)
  1. CIALIS [Suspect]

REACTIONS (2)
  - NEUTROPHIL COUNT DECREASED [None]
  - UPPER RESPIRATORY TRACT INFECTION [None]
